FAERS Safety Report 9813194 (Version 1)
Quarter: 2014Q1

REPORT INFORMATION
  Report Type: Spontaneous
  Country: FR (occurrence: FR)
  Receive Date: 20140113
  Receipt Date: 20140113
  Transmission Date: 20141002
  Serious: Yes (Hospitalization)
  Sender: FDA-Public Use
  Company Number: FR-009507513-1401FRA001260

PATIENT
  Age: 45 Year
  Sex: Male
  Weight: 54 kg

DRUGS (2)
  1. NOROXINE [Suspect]
     Indication: PROPHYLAXIS
     Dosage: 400 MG, QD
     Route: 048
     Dates: start: 20131003, end: 20131213
  2. CORTANCYL [Concomitant]
     Dosage: 40 MG, QD
     Dates: start: 201309, end: 201310

REACTIONS (2)
  - Tendon disorder [Not Recovered/Not Resolved]
  - Pain in extremity [Not Recovered/Not Resolved]
